FAERS Safety Report 19494184 (Version 1)
Quarter: 2021Q3

REPORT INFORMATION
  Report Type: Spontaneous
  Country: GB (occurrence: GB)
  Receive Date: 20210705
  Receipt Date: 20210705
  Transmission Date: 20211014
  Serious: Yes (Hospitalization)
  Sender: FDA-Public Use
  Company Number: GB-ROCHE-2863069

PATIENT
  Age: 83 Year
  Sex: Female

DRUGS (21)
  1. DUPILUMAB [Concomitant]
     Active Substance: DUPILUMAB
     Dates: start: 20201027
  2. MYCOPHENOLATE MOFETIL. [Suspect]
     Active Substance: MYCOPHENOLATE MOFETIL
     Dosage: IN THE MORNING AND AT TEATIME FOR 28 DAYS
     Route: 065
     Dates: start: 20201209
  3. CLOBETASONE [Concomitant]
     Active Substance: CLOBETASONE
  4. DUPILUMAB [Concomitant]
     Active Substance: DUPILUMAB
     Dates: start: 20200824
  5. FERROUS SULFATE. [Concomitant]
     Active Substance: FERROUS SULFATE
     Dosage: ONE TO BE TAKEN THREE TIMES A DAY 84 TABLET
  6. OXYCODONE [Concomitant]
     Active Substance: OXYCODONE
  7. VENLAFAXINE [Concomitant]
     Active Substance: VENLAFAXINE HYDROCHLORIDE
     Dosage: ONE TO BE TAKEN EACH DAY 28 TABLET
  8. MYCOPHENOLATE MOFETIL. [Suspect]
     Active Substance: MYCOPHENOLATE MOFETIL
     Indication: PRODUCT USED FOR UNKNOWN INDICATION
     Dosage: EVERY MORNING FOR 21 DAYS
     Route: 065
     Dates: start: 20201204
  9. CLOPIDOGREL [Concomitant]
     Active Substance: CLOPIDOGREL BISULFATE
     Dosage: ONE TO BE TAKEN EACH DAY 28 TABLET
  10. ATENOLOL. [Concomitant]
     Active Substance: ATENOLOL
     Dosage: EACH DAY 28 TABLET
  11. MOMETASONE [Concomitant]
     Active Substance: MOMETASONE
  12. PARACETAMOL [Concomitant]
     Active Substance: ACETAMINOPHEN
     Dosage: TWO TO BE TAKEN EVERY 4?6 HOURS UP TO FOUR TIMES A DAY
  13. CLOBETASOL [Concomitant]
     Active Substance: CLOBETASOL
  14. SIMVASTATIN. [Concomitant]
     Active Substance: SIMVASTATIN
     Dosage: ONE TO BE TAKEN AT NIGHT 28 TABLET
  15. THIAMINE. [Concomitant]
     Active Substance: THIAMINE
     Dosage: ONE TO BE TAKEN TWICE A DAY 56 TABLET
  16. PREDNISOLONE. [Concomitant]
     Active Substance: PREDNISOLONE
  17. LORATADINE. [Concomitant]
     Active Substance: LORATADINE
     Dosage: 5MG/5ML ORAL SOLUTION 5ML PO OD 120 ML
  18. DESLORATADINE. [Concomitant]
     Active Substance: DESLORATADINE
  19. MIRTAZAPINE. [Concomitant]
     Active Substance: MIRTAZAPINE
     Dosage: ONE TO BE TAKEN AT NIGHT 28 TABLET
  20. PERMETHRIN. [Concomitant]
     Active Substance: PERMETHRIN
  21. ZEROCREAM [Concomitant]

REACTIONS (1)
  - Acute kidney injury [Unknown]
